FAERS Safety Report 9402281 (Version 1)
Quarter: 2013Q3

REPORT INFORMATION
  Report Type: Spontaneous
  Country: US (occurrence: US)
  Receive Date: 20130716
  Receipt Date: 20130716
  Transmission Date: 20140515
  Serious: Yes (Other)
  Sender: FDA-Public Use
  Company Number: US-BAYER-2013-083561

PATIENT
  Age: 39 Year
  Sex: Female

DRUGS (2)
  1. MIRENA [Suspect]
     Indication: CONTRACEPTION
     Dosage: 20 MCG/24HR, CONT
     Route: 015
     Dates: start: 2008
  2. MIRENA [Suspect]
     Indication: GENITAL HAEMORRHAGE

REACTIONS (6)
  - Procedural pain [None]
  - Device difficult to use [None]
  - Device dislocation [None]
  - Syncope [None]
  - Tremor [None]
  - Procedural haemorrhage [None]
